FAERS Safety Report 14305949 (Version 4)
Quarter: 2020Q1

REPORT INFORMATION
  Report Type: Spontaneous
  Country: US (occurrence: US)
  Receive Date: 20171219
  Receipt Date: 20200309
  Transmission Date: 20200409
  Serious: No
  Sender: FDA-Public Use
  Company Number: US-PFIZER INC-2017534374

PATIENT
  Age: 54 Year
  Sex: Female

DRUGS (7)
  1. LEVOTHYROXINE. [Concomitant]
     Active Substance: LEVOTHYROXINE
     Indication: HORMONE THERAPY
     Dosage: UNK
     Dates: start: 20111111, end: 20150601
  2. PREMPRO [Concomitant]
     Active Substance: ESTROGENS, CONJUGATED\MEDROXYPROGESTERONE ACETATE
     Indication: HORMONE THERAPY
     Dosage: UNK
     Dates: start: 20050101, end: 20150601
  3. FEMARA [Concomitant]
     Active Substance: LETROZOLE
     Indication: HORMONE THERAPY
     Dosage: UNK
     Dates: start: 20120129, end: 20150601
  4. NEOSAR [Concomitant]
     Active Substance: CYCLOPHOSPHAMIDE
     Indication: CHEMOTHERAPY
     Dosage: UNK
  5. DOCETAXEL. [Suspect]
     Active Substance: DOCETAXEL
     Indication: BREAST CANCER FEMALE
     Dosage: 144 MG, CYCLIC (04 CYCLES, EVERY 03 WEEKS)
     Dates: start: 20110719, end: 20110919
  6. TAXOTERE [Suspect]
     Active Substance: DOCETAXEL
     Indication: BREAST CANCER FEMALE
     Dosage: 144 MG, CYCLIC (04 CYCLES, EVERY 03 WEEKS)
     Dates: start: 20110719, end: 20110919
  7. CYTOXAN [Concomitant]
     Active Substance: CYCLOPHOSPHAMIDE
     Indication: CHEMOTHERAPY
     Dosage: UNK

REACTIONS (6)
  - Alopecia [Not Recovered/Not Resolved]
  - Hair colour changes [Not Recovered/Not Resolved]
  - Hair texture abnormal [Not Recovered/Not Resolved]
  - Madarosis [Not Recovered/Not Resolved]
  - Hair disorder [Not Recovered/Not Resolved]
  - Anxiety [Unknown]

NARRATIVE: CASE EVENT DATE: 2011
